FAERS Safety Report 23831026 (Version 2)
Quarter: 2025Q1

REPORT INFORMATION
  Report Type: Spontaneous
  Country: CA (occurrence: CA)
  Receive Date: 20240508
  Receipt Date: 20250206
  Transmission Date: 20250409
  Serious: Yes (Hospitalization)
  Sender: TEVA
  Company Number: CA-TEVA-VS-3195427

PATIENT
  Age: 19 Year
  Sex: Male
  Weight: 63 kg

DRUGS (27)
  1. PROPRANOLOL HYDROCHLORIDE [Suspect]
     Active Substance: PROPRANOLOL HYDROCHLORIDE
     Indication: Product used for unknown indication
     Route: 048
  2. BENZTROPINE MESYLATE [Interacting]
     Active Substance: BENZTROPINE MESYLATE
     Indication: Extrapyramidal disorder
     Route: 030
  3. BENZTROPINE MESYLATE [Interacting]
     Active Substance: BENZTROPINE MESYLATE
     Indication: Extrapyramidal disorder
     Route: 048
  4. BREXPIPRAZOLE [Concomitant]
     Active Substance: BREXPIPRAZOLE
     Indication: Psychiatric care
     Route: 048
  5. CLOZAPINE [Interacting]
     Active Substance: CLOZAPINE
     Indication: Product used for unknown indication
     Route: 048
  6. CLOZAPINE [Interacting]
     Active Substance: CLOZAPINE
     Indication: Product used for unknown indication
     Route: 048
  7. CLOZAPINE [Interacting]
     Active Substance: CLOZAPINE
     Indication: Product used for unknown indication
     Route: 048
  8. CLOZAPINE [Interacting]
     Active Substance: CLOZAPINE
     Indication: Product used for unknown indication
     Route: 048
  9. QUETIAPINE FUMARATE [Suspect]
     Active Substance: QUETIAPINE FUMARATE
     Indication: Psychiatric care
     Route: 048
  10. QUETIAPINE FUMARATE [Suspect]
     Active Substance: QUETIAPINE FUMARATE
     Indication: Psychiatric care
     Route: 048
  11. QUETIAPINE FUMARATE [Suspect]
     Active Substance: QUETIAPINE FUMARATE
     Indication: Psychiatric care
     Route: 048
  12. QUETIAPINE FUMARATE [Suspect]
     Active Substance: QUETIAPINE FUMARATE
     Indication: Psychiatric care
     Route: 048
  13. LORAZEPAM [Suspect]
     Active Substance: LORAZEPAM
     Indication: Agitation
     Route: 048
  14. LORAZEPAM [Suspect]
     Active Substance: LORAZEPAM
     Indication: Agitation
     Route: 048
  15. FLUVOXAMINE [Interacting]
     Active Substance: FLUVOXAMINE
     Indication: Psychiatric care
     Route: 048
  16. FLUVOXAMINE [Interacting]
     Active Substance: FLUVOXAMINE
     Indication: Psychiatric care
     Route: 048
  17. LORAZEPAM [Interacting]
     Active Substance: LORAZEPAM
     Indication: Agitation
     Route: 030
  18. LORAZEPAM [Interacting]
     Active Substance: LORAZEPAM
     Indication: Agitation
     Route: 030
  19. LOXAPINE SUCCINATE [Interacting]
     Active Substance: LOXAPINE SUCCINATE
     Indication: Agitation
     Route: 030
  20. LOXAPINE SUCCINATE [Interacting]
     Active Substance: LOXAPINE SUCCINATE
     Indication: Agitation
     Route: 048
  21. POLYETHYLENE GLYCOL 3350 [Concomitant]
     Active Substance: POLYETHYLENE GLYCOL 3350
     Indication: Product used for unknown indication
     Route: 048
  22. CLEARLAX [Concomitant]
     Active Substance: POLYETHYLENE GLYCOL 3350
     Indication: Product used for unknown indication
     Dosage: DOSAGE FORM:POWDER FOR SOLUTION ORAL
     Route: 048
  23. BENZTROPINE MESYLATE [Interacting]
     Active Substance: BENZTROPINE MESYLATE
     Indication: Extrapyramidal disorder
     Route: 030
  24. BENZTROPINE MESYLATE [Interacting]
     Active Substance: BENZTROPINE MESYLATE
     Indication: Extrapyramidal disorder
     Route: 048
  25. CLOZAPINE [Interacting]
     Active Substance: CLOZAPINE
     Indication: Psychiatric care
     Route: 065
  26. CLOZAPINE [Interacting]
     Active Substance: CLOZAPINE
     Indication: Psychiatric care
     Route: 048
  27. CLOZAPINE [Interacting]
     Active Substance: CLOZAPINE
     Indication: Psychiatric care
     Route: 048

REACTIONS (16)
  - Confusional state [Not Recovered/Not Resolved]
  - Condition aggravated [Not Recovered/Not Resolved]
  - Thinking abnormal [Not Recovered/Not Resolved]
  - Drug level decreased [Not Recovered/Not Resolved]
  - Drug level below therapeutic [Not Recovered/Not Resolved]
  - Treatment noncompliance [Not Recovered/Not Resolved]
  - Drug interaction [Not Recovered/Not Resolved]
  - Constipation [Not Recovered/Not Resolved]
  - Depression [Not Recovered/Not Resolved]
  - Dysphemia [Not Recovered/Not Resolved]
  - Fatigue [Not Recovered/Not Resolved]
  - Hypoaesthesia [Not Recovered/Not Resolved]
  - Memory impairment [Not Recovered/Not Resolved]
  - Mental disorder [Not Recovered/Not Resolved]
  - Sedation [Not Recovered/Not Resolved]
  - Somnolence [Not Recovered/Not Resolved]
